FAERS Safety Report 21937921 (Version 1)
Quarter: 2023Q1

REPORT INFORMATION
  Report Type: Spontaneous
  Country: US (occurrence: None)
  Receive Date: 20230201
  Receipt Date: 20230201
  Transmission Date: 20230417
  Serious: Yes (Other)
  Sender: FDA-Public Use
  Company Number: None

PATIENT
  Sex: Male

DRUGS (22)
  1. REPATHA [Suspect]
     Active Substance: EVOLOCUMAB
     Indication: Hyperlipidaemia
     Dosage: OTHER FREQUENCY : EVERY 2 WEEKS;?
     Route: 058
  2. ALLEGRA D-12 HOUR [Concomitant]
     Active Substance: FEXOFENADINE HYDROCHLORIDE\PSEUDOEPHEDRINE HYDROCHLORIDE
  3. Entresto 49/51 [Concomitant]
  4. GABAPENTIN [Concomitant]
     Active Substance: GABAPENTIN
  5. INSULIN LISPRO [Concomitant]
     Active Substance: INSULIN LISPRO
  6. JARDIANCE [Concomitant]
     Active Substance: EMPAGLIFLOZIN
  7. HYDROCHLOROTHIAZIDE\LOSARTAN POTASSIUM [Concomitant]
     Active Substance: HYDROCHLOROTHIAZIDE\LOSARTAN POTASSIUM
  8. Metoprolol ER Succinate 25mg [Concomitant]
  9. Nitroglycerin 0.4mg [Concomitant]
  10. ACETAMINOPHEN\OXYCODONE HYDROCHLORIDE [Concomitant]
     Active Substance: ACETAMINOPHEN\OXYCODONE HYDROCHLORIDE
  11. SPIRONOLACTONE [Concomitant]
     Active Substance: SPIRONOLACTONE
  12. TIZANIDINE [Concomitant]
     Active Substance: TIZANIDINE
  13. TOUJEO MAX [Concomitant]
     Active Substance: INSULIN GLARGINE
  14. TRAMADOL [Concomitant]
     Active Substance: TRAMADOL
  15. TRIAMCINOLONE ACETONIDE [Concomitant]
     Active Substance: TRIAMCINOLONE ACETONIDE
  16. WARFARIN [Concomitant]
     Active Substance: WARFARIN
  17. CEFDINIR [Concomitant]
     Active Substance: CEFDINIR
  18. CYCLOBENZAPRINE [Concomitant]
     Active Substance: CYCLOBENZAPRINE
  19. OZEMPIC [Concomitant]
     Active Substance: SEMAGLUTIDE
  20. VASCEPA [Concomitant]
     Active Substance: ICOSAPENT ETHYL
  21. METFORMIN [Concomitant]
     Active Substance: METFORMIN HYDROCHLORIDE
  22. FUROSEMIDE [Concomitant]
     Active Substance: FUROSEMIDE

REACTIONS (1)
  - Silent myocardial infarction [None]
